FAERS Safety Report 9509099 (Version 2)
Quarter: 2013Q3

REPORT INFORMATION
  Report Type: Spontaneous
  Country: US (occurrence: US)
  Receive Date: 20130909
  Receipt Date: 20130909
  Transmission Date: 20140515
  Serious: No
  Sender: FDA-Public Use
  Company Number: US-BRISTOL-MYERS SQUIBB COMPANY-19038876

PATIENT
  Age: 33 Year
  Sex: Female
  Weight: 90.7 kg

DRUGS (1)
  1. ABILIFY [Suspect]
     Indication: BIPOLAR I DISORDER
     Dosage: TAKEN PRODUCT FOR 1YR THEN DISCONTINUED AGAIN RESTARTED ON 20MAY13.
     Route: 048

REACTIONS (6)
  - Dizziness postural [Unknown]
  - Muscle twitching [Unknown]
  - Weight increased [Unknown]
  - Oral pain [Unknown]
  - Dyskinesia [Unknown]
  - Dysphagia [Unknown]
